FAERS Safety Report 12572997 (Version 1)
Quarter: 2016Q3

REPORT INFORMATION
  Report Type: Spontaneous
  Country: US (occurrence: None)
  Receive Date: 20160719
  Receipt Date: 20160719
  Transmission Date: 20161109
  Serious: Yes (Other)
  Sender: FDA-Public Use
  Company Number: None

PATIENT
  Age: 61 Year
  Sex: Female

DRUGS (1)
  1. ODEFSEY [Suspect]
     Active Substance: EMTRICITABINE\RILPIVIRINE HYDROCHLORIDE\TENOFOVIR ALAFENAMIDE FUMARATE
     Indication: HIV INFECTION
     Dosage: 200MG/25MG/25MG ONCE DAILY ORAL
     Route: 048
     Dates: start: 201605, end: 201606

REACTIONS (5)
  - Vomiting [None]
  - Dizziness [None]
  - Therapy cessation [None]
  - Nausea [None]
  - Rash generalised [None]
